FAERS Safety Report 25808817 (Version 1)
Quarter: 2025Q3

REPORT INFORMATION
  Report Type: Spontaneous
  Country: US (occurrence: US)
  Receive Date: 20250916
  Receipt Date: 20250916
  Transmission Date: 20251021
  Serious: Yes (Hospitalization)
  Sender: MYLAN
  Company Number: US-MYLANLABS-2025M1077322

PATIENT
  Age: 3 Decade
  Sex: Male

DRUGS (2)
  1. NITROGLYCERIN TRANSDERMAL DELIVERY SYSTEM [Suspect]
     Active Substance: NITROGLYCERIN
     Indication: Vasospasm
  2. NICARDIPINE [Suspect]
     Active Substance: NICARDIPINE
     Indication: Vasospasm

REACTIONS (1)
  - Therapy non-responder [Unknown]
